FAERS Safety Report 7591900-2 (Version None)
Quarter: 2011Q3

REPORT INFORMATION
  Report Type: 
  Country: None (occurrence: None)
  Receive Date: 20110701
  Receipt Date: 20110701
  Transmission Date: 20111222
  Serious: Yes (Life-Threatening, Hospitalization)
  Sender: FDA-Public Use
  Company Number: None

PATIENT
  Age: 86 Year
  Sex: Female
  Weight: 89.3586 kg

DRUGS (1)
  1. ACTOS [Suspect]
     Indication: DIABETES MELLITUS
     Dosage: ONE PILL DAILY PO
     Route: 048
     Dates: start: 20020101, end: 20090101

REACTIONS (5)
  - CARDIAC FAILURE CONGESTIVE [None]
  - BLADDER NEOPLASM [None]
  - RENAL IMPAIRMENT [None]
  - WEIGHT INCREASED [None]
  - BLADDER CANCER [None]
